FAERS Safety Report 12625476 (Version 1)
Quarter: 2016Q3

REPORT INFORMATION
  Report Type: Spontaneous
  Country: US (occurrence: US)
  Receive Date: 20160805
  Receipt Date: 20160805
  Transmission Date: 20161109
  Serious: Yes (Hospitalization, Other)
  Sender: FDA-Public Use
  Company Number: US-SUN PHARMACEUTICAL INDUSTRIES LTD-2016US-121133

PATIENT
  Age: 64 Year
  Sex: Male

DRUGS (8)
  1. IBUPROFEN. [Interacting]
     Active Substance: IBUPROFEN
     Indication: PAIN IN EXTREMITY
     Dosage: 200 MG, DAILY
     Route: 065
  2. PIROXICAM. [Interacting]
     Active Substance: PIROXICAM
     Indication: PAIN IN EXTREMITY
     Dosage: 20 MG, DAILY
     Route: 065
  3. MELOXICAM. [Interacting]
     Active Substance: MELOXICAM
     Indication: PAIN IN EXTREMITY
     Dosage: 15 MG, UNK
     Route: 065
  4. CELECOXIB. [Interacting]
     Active Substance: CELECOXIB
     Indication: PAIN IN EXTREMITY
     Dosage: 200 MG, DAILY
     Route: 065
  5. ANTINEVRALGIC [Interacting]
     Active Substance: ASPIRIN\CAFFEINE\PHENACETIN
     Indication: PAIN IN EXTREMITY
     Dosage: 2 DF, DAILY
     Route: 065
  6. ALGOCALMINE [Interacting]
     Active Substance: METAMIZOLE SODIUM
     Indication: PAIN IN EXTREMITY
     Dosage: 2 DF, DAILY
     Route: 065
  7. SULPHAMETHOXAZOLE/TRIMETHOPRIM [Suspect]
     Active Substance: SULFAMETHOXAZOLE\TRIMETHOPRIM
     Indication: URINARY TRACT INFECTION
     Dosage: 3 DF, DAILY (DF=40 MG/800 MG)
     Route: 048
  8. KETOROLAC [Interacting]
     Active Substance: KETOROLAC\KETOROLAC TROMETHAMINE
     Indication: PAIN IN EXTREMITY
     Dosage: 30 MG, UNK
     Route: 065

REACTIONS (2)
  - Rhabdomyolysis [Recovered/Resolved]
  - Drug interaction [Recovered/Resolved]
